FAERS Safety Report 6747486-5 (Version None)
Quarter: 2010Q2

REPORT INFORMATION
  Report Type: 
  Country: None (occurrence: None)
  Receive Date: 20100528
  Receipt Date: 20100521
  Transmission Date: 20101027
  Serious: Yes (Other)
  Sender: FDA-Public Use
  Company Number: US-MERCK-1005USA04180

PATIENT
  Age: 36 Month
  Sex: Male

DRUGS (2)
  1. SINGULAIR [Suspect]
     Indication: HYPERSENSITIVITY
     Route: 048
     Dates: start: 20061101, end: 20070113
  2. SINGULAIR [Suspect]
     Indication: ASTHMA
     Route: 048
     Dates: start: 20061101, end: 20070113

REACTIONS (9)
  - ABDOMINAL PAIN UPPER [None]
  - AGGRESSION [None]
  - CRYING [None]
  - INSOMNIA [None]
  - MOOD ALTERED [None]
  - PENILE PAIN [None]
  - PHYSICAL ASSAULT [None]
  - SCREAMING [None]
  - SLEEP TERROR [None]
